FAERS Safety Report 6939409-0 (Version None)
Quarter: 2010Q3

REPORT INFORMATION
  Report Type: 
  Country: None (occurrence: None)
  Receive Date: 20100819
  Receipt Date: 20100813
  Transmission Date: 20110219
  Serious: Yes (Hospitalization)
  Sender: FDA-Public Use
  Company Number: 2010SP041643

PATIENT
  Age: 83 Year
  Sex: Female

DRUGS (2)
  1. REMERON [Suspect]
     Indication: DEPRESSION
     Dosage: 30 MG;QD;PO
     Route: 048
     Dates: start: 20100521, end: 20100621
  2. LEVOPRAID (LEVOSULPIRIDE) (LEVOSULPIRIDE) [Suspect]
     Indication: DEPRESSION
     Dosage: 100 MG;QD;PO
     Route: 048
     Dates: start: 20100521, end: 20100621

REACTIONS (2)
  - DISORIENTATION [None]
  - DYSARTHRIA [None]
